FAERS Safety Report 8138191-1 (Version None)
Quarter: 2012Q1

REPORT INFORMATION
  Report Type: 
  Country: None (occurrence: None)
  Receive Date: 20120215
  Receipt Date: 20120207
  Transmission Date: 20120608
  Serious: Yes (Hospitalization)
  Sender: FDA-Public Use
  Company Number: ES-ASTELLAS-2012US000522

PATIENT
  Sex: Female
  Weight: 61 kg

DRUGS (9)
  1. GEMCITABINE [Suspect]
     Dosage: UNK
     Route: 042
     Dates: start: 20120103, end: 20120110
  2. CAPECITABINE [Suspect]
     Indication: PANCREATIC CARCINOMA
     Dosage: 830 MG/M2, Q12 HOURS DAY 1-21, 28 DAY CYCLE
     Route: 048
     Dates: start: 20111221, end: 20120102
  3. CAPECITABINE [Suspect]
     Dosage: UNK
     Route: 048
     Dates: start: 20120103, end: 20120110
  4. ERLOTINIB HYDROCHLORIDE [Suspect]
     Dosage: UNK
     Route: 048
     Dates: start: 20120103, end: 20120110
  5. ENOXAPARIN SODIUM [Concomitant]
     Indication: PROPHYLAXIS
     Dosage: 1 MG/KG, UNKNOWN/D
     Route: 058
     Dates: start: 20111221
  6. INSULIN [Concomitant]
     Indication: DIABETES MELLITUS
     Dosage: 12 IU, UNKNOWN/D
     Route: 058
     Dates: start: 20120104
  7. ERLOTINIB HYDROCHLORIDE [Suspect]
     Indication: PANCREATIC CARCINOMA
     Dosage: 100 MG, UID/QD
     Route: 048
     Dates: start: 20111221, end: 20120102
  8. ATORVASTATIN [Concomitant]
     Indication: HYPERCHOLESTEROLAEMIA
     Dosage: 20 MG, UNKNOWN/D
     Route: 048
  9. GEMCITABINE [Suspect]
     Indication: PANCREATIC CARCINOMA
     Dosage: 1580 MG, DAYS 1, 8, 15 - 28 DAYS CYCLE
     Route: 042
     Dates: start: 20111221, end: 20111228

REACTIONS (2)
  - MUCOSAL INFLAMMATION [None]
  - ANAEMIA [None]
